FAERS Safety Report 6125230-2 (Version None)
Quarter: 2009Q1

REPORT INFORMATION
  Report Type: 
  Country: None (occurrence: None)
  Receive Date: 20090320
  Receipt Date: 20090310
  Transmission Date: 20090719
  Serious: Yes (Life-Threatening, Hospitalization, Other)
  Sender: FDA-Public Use
  Company Number: GB-RANBAXY-2009RR-22630

PATIENT
  Sex: Male
  Weight: 82.8 kg

DRUGS (2)
  1. FLUOXETINE [Suspect]
     Dosage: 20 MG, UNK
     Route: 048
     Dates: end: 20080626
  2. DIAZEPAM [Concomitant]
     Dosage: 70 MG, UNK

REACTIONS (2)
  - OVERDOSE [None]
  - PULMONARY HAEMORRHAGE [None]
